FAERS Safety Report 22003125 (Version 1)
Quarter: 2023Q1

REPORT INFORMATION
  Report Type: Spontaneous
  Country: JP (occurrence: JP)
  Receive Date: 20230217
  Receipt Date: 20230217
  Transmission Date: 20230417
  Serious: Yes (Other)
  Sender: FDA-Public Use
  Company Number: JP-TAKEDA-2023TJP000320

PATIENT
  Age: 9 Decade
  Sex: Male

DRUGS (3)
  1. VECTIBIX [Suspect]
     Active Substance: PANITUMUMAB
     Indication: Colon cancer
     Dosage: 372 MILLIGRAM, Q2WK
     Route: 040
  2. VECTIBIX [Suspect]
     Active Substance: PANITUMUMAB
     Dosage: 372 MILLIGRAM, Q2WK
     Route: 040
     Dates: start: 202301
  3. CAPECITABINE [Concomitant]
     Active Substance: CAPECITABINE
     Dosage: 2400 MILLIGRAM
     Route: 065

REACTIONS (4)
  - Myelosuppression [Unknown]
  - Product use issue [Unknown]
  - Abdominal distension [Unknown]
  - Rash [Recovering/Resolving]

NARRATIVE: CASE EVENT DATE: 20221201
